FAERS Safety Report 10278770 (Version 2)
Quarter: 2014Q4

REPORT INFORMATION
  Report Type: Report from Study
  Country: US (occurrence: US)
  Receive Date: 20140705
  Receipt Date: 20141204
  Transmission Date: 20150528
  Serious: Yes (Hospitalization, Other)
  Sender: FDA-Public Use
  Company Number: US-ALEXION PHARMACEUTICALS INC.-A201305298

PATIENT

DRUGS (1)
  1. SOLIRIS [Suspect]
     Active Substance: ECULIZUMAB
     Indication: HAEMOLYTIC URAEMIC SYNDROME
     Dosage: UNK
     Route: 042
     Dates: start: 20131206, end: 20131212

REACTIONS (7)
  - Haemorrhage [Unknown]
  - Agitation [Unknown]
  - Drug ineffective [Unknown]
  - Thrombosis [Unknown]
  - Pain in extremity [Unknown]
  - Gangrene [Unknown]
  - Unevaluable event [Unknown]
